FAERS Safety Report 25936495 (Version 1)
Quarter: 2025Q4

REPORT INFORMATION
  Report Type: Spontaneous
  Country: CH (occurrence: CH)
  Receive Date: 20251017
  Receipt Date: 20251017
  Transmission Date: 20260118
  Serious: Yes (Hospitalization)
  Sender: ELI LILLY AND COMPANY
  Company Number: None

PATIENT
  Age: 53 Year
  Sex: Male
  Weight: 72 kg

DRUGS (3)
  1. ERBITUX [Suspect]
     Active Substance: CETUXIMAB
     Indication: Squamous cell carcinoma
     Dosage: 800 MG, UNKNOWN
     Route: 042
     Dates: start: 20241024, end: 20241024
  2. ERBITUX [Suspect]
     Active Substance: CETUXIMAB
     Dosage: 520 MG, UNKNOWN
     Route: 042
     Dates: start: 20241114, end: 20250227
  3. OPDIVO [Suspect]
     Active Substance: NIVOLUMAB
     Indication: Squamous cell carcinoma
     Dosage: 3 MG/KG, UNKNOWN
     Route: 042
     Dates: start: 20240725, end: 20240905

REACTIONS (1)
  - Pneumonitis [Recovering/Resolving]

NARRATIVE: CASE EVENT DATE: 20250227
